FAERS Safety Report 7628090-3 (Version None)
Quarter: 2011Q3

REPORT INFORMATION
  Report Type: 
  Country: None (occurrence: None)
  Receive Date: 20110722
  Receipt Date: 20110712
  Transmission Date: 20111222
  Serious: No
  Sender: FDA-Public Use
  Company Number: US-BIOGENIDEC-2011BI026046

PATIENT
  Age: 50 Year
  Sex: Female

DRUGS (2)
  1. AVONEX [Suspect]
     Indication: MULTIPLE SCLEROSIS
     Route: 030
     Dates: start: 20040201
  2. AVONEX [Suspect]
     Route: 030
     Dates: start: 20040212

REACTIONS (5)
  - CHILLS [None]
  - VOMITING [None]
  - HYPERHIDROSIS [None]
  - PYREXIA [None]
  - PAIN [None]
